FAERS Safety Report 6978947-1 (Version None)
Quarter: 2010Q3

REPORT INFORMATION
  Report Type: 
  Country: None (occurrence: None)
  Receive Date: 20100913
  Receipt Date: 20100908
  Transmission Date: 20110219
  Serious: Yes (Death)
  Sender: FDA-Public Use
  Company Number: TW-MERCK-1009TWN00059

PATIENT
  Age: 83 Year
  Sex: Female
  Weight: 80 kg

DRUGS (5)
  1. COZAAR [Suspect]
     Indication: HYPERTENSION
     Route: 048
     Dates: end: 20100701
  2. AMLODIPINE BESYLATE [Concomitant]
     Indication: HYPERTENSION
     Route: 048
     Dates: end: 20100701
  3. BISACODYL [Concomitant]
     Indication: CONSTIPATION
     Route: 048
     Dates: end: 20100701
  4. GLICLAZIDE [Concomitant]
     Indication: DIABETES MELLITUS
     Route: 048
     Dates: end: 20100701
  5. METFORMIN HYDROCHLORIDE [Concomitant]
     Indication: DIABETES MELLITUS
     Route: 048
     Dates: end: 20100701

REACTIONS (1)
  - FALL [None]
